FAERS Safety Report 6981209-X (Version None)
Quarter: 2010Q3

REPORT INFORMATION
  Report Type: 
  Country: None (occurrence: None)
  Receive Date: 20100914
  Receipt Date: 20100831
  Transmission Date: 20110219
  Serious: No
  Sender: FDA-Public Use
  Company Number: US-PFIZER INC-2010092104

PATIENT
  Sex: Female
  Weight: 73.016 kg

DRUGS (1)
  1. NEURONTIN [Suspect]
     Indication: RESTLESS LEGS SYNDROME
     Dosage: 300 MG, 1X/DAY
     Route: 048
     Dates: start: 20100530, end: 20100715

REACTIONS (4)
  - ANXIETY [None]
  - DROOLING [None]
  - DYSPHAGIA [None]
  - WITHDRAWAL SYNDROME [None]
